APPROVED DRUG PRODUCT: TRANEXAMIC ACID
Active Ingredient: TRANEXAMIC ACID
Strength: 1GM/100ML (10MG/ML)
Dosage Form/Route: SOLUTION;INTRAVENOUS
Application: A218896 | Product #001 | TE Code: AP
Applicant: HERITAGE PHARMACEUTICALS INC DBA AVET PHARMACEUTICALS INC
Approved: Jun 2, 2025 | RLD: No | RS: No | Type: RX